FAERS Safety Report 6940261-8 (Version None)
Quarter: 2010Q3

REPORT INFORMATION
  Report Type: 
  Country: None (occurrence: None)
  Receive Date: 20100820
  Receipt Date: 20100805
  Transmission Date: 20110219
  Serious: Yes (Other)
  Sender: FDA-Public Use
  Company Number: 2010S1000697

PATIENT
  Age: 78 Year
  Sex: Female
  Weight: 56.2 kg

DRUGS (5)
  1. LIVALO [Suspect]
     Indication: HYPERCHOLESTEROLAEMIA
     Dosage: 2 MG;1X;PO, 2 MG;1X;PO
     Route: 048
     Dates: start: 20041009, end: 20090305
  2. LIVALO [Suspect]
     Indication: HYPERCHOLESTEROLAEMIA
     Dosage: 2 MG;1X;PO, 2 MG;1X;PO
     Route: 048
     Dates: start: 20090306, end: 20090626
  3. AVAPRO [Concomitant]
  4. CONIEL [Concomitant]
  5. DOXAZOSIN MESYLATE [Concomitant]

REACTIONS (2)
  - BLOOD CREATININE INCREASED [None]
  - HAEMODIALYSIS [None]
